FAERS Safety Report 21760485 (Version 9)
Quarter: 2023Q1

REPORT INFORMATION
  Report Type: Spontaneous
  Country: JO (occurrence: JO)
  Receive Date: 20221221
  Receipt Date: 20230213
  Transmission Date: 20230417
  Serious: Yes (Hospitalization, Other)
  Sender: FDA-Public Use
  Company Number: JO-002147023-NVSC2022JO289775

PATIENT
  Age: 31 Year
  Sex: Female

DRUGS (3)
  1. LAMISIL [Suspect]
     Active Substance: TERBINAFINE HYDROCHLORIDE
     Indication: Onychomycosis
     Dosage: 250 MG, QD
     Route: 048
     Dates: start: 20221108, end: 20221130
  2. COROTROPE [Concomitant]
     Active Substance: MILRINONE
     Indication: Product used for unknown indication
     Dosage: UNK
     Route: 065
     Dates: start: 20221129
  3. IMURAN [Concomitant]
     Active Substance: AZATHIOPRINE
     Indication: Product used for unknown indication
     Dosage: 1 DOSAGE FORM, QD ( (USED TO BE 2 A DAY EVERY 12  HOURS)
     Route: 065
     Dates: start: 20221211

REACTIONS (31)
  - Pain [Recovered/Resolved]
  - Insomnia [Recovered/Resolved]
  - Mental disorder [Recovered/Resolved]
  - Acute generalised exanthematous pustulosis [Recovered/Resolved]
  - Pruritus [Recovered/Resolved]
  - Dizziness [Recovered/Resolved]
  - Decreased appetite [Recovered/Resolved]
  - Fatigue [Recovered/Resolved]
  - Nausea [Recovered/Resolved]
  - Inflammation [Recovered/Resolved]
  - Skin discolouration [Recovered/Resolved]
  - Peripheral swelling [Recovered/Resolved]
  - Erythema [Recovered/Resolved]
  - Contusion [Recovered/Resolved]
  - Eye swelling [Recovered/Resolved]
  - Blister [Recovered/Resolved]
  - Scar [Recovered/Resolved]
  - Acne [Recovered/Resolved]
  - Pigmentation disorder [Recovered/Resolved]
  - Decreased immune responsiveness [Recovered/Resolved]
  - Malaise [Recovered/Resolved]
  - Skin exfoliation [Recovered/Resolved]
  - Chills [Recovered/Resolved]
  - Skin burning sensation [Recovered/Resolved]
  - Eating disorder [Recovered/Resolved]
  - Nightmare [Recovered/Resolved]
  - Subcorneal pustular dermatosis [Recovered/Resolved]
  - Rash [Recovered/Resolved]
  - Pyrexia [Recovered/Resolved]
  - Headache [Recovered/Resolved]
  - Drug ineffective [Recovered/Resolved]

NARRATIVE: CASE EVENT DATE: 20221128
